FAERS Safety Report 7832767-4 (Version None)
Quarter: 2011Q4

REPORT INFORMATION
  Report Type: 
  Country: None (occurrence: None)
  Receive Date: 20111024
  Receipt Date: 20111017
  Transmission Date: 20120403
  Serious: No
  Sender: FDA-Public Use
  Company Number: US-BIOGENIDEC-2011BI039712

PATIENT
  Age: 40 Year
  Sex: Female

DRUGS (1)
  1. TYSABRI [Suspect]
     Indication: MULTIPLE SCLEROSIS
     Route: 042
     Dates: start: 20110825, end: 20110922

REACTIONS (5)
  - MENTAL IMPAIRMENT [None]
  - DIZZINESS [None]
  - VOMITING [None]
  - SENSORY DISTURBANCE [None]
  - SYNCOPE [None]
